FAERS Safety Report 18752145 (Version 1)
Quarter: 2021Q1

REPORT INFORMATION
  Report Type: Spontaneous
  Country: US (occurrence: US)
  Receive Date: 20210118
  Receipt Date: 20210118
  Transmission Date: 20210419
  Serious: No
  Sender: FDA-Public Use
  Company Number: US-FOUNDATIONCONSUMERHC-2020-US-020335

PATIENT
  Age: 27 Year
  Sex: Female
  Weight: 78.47 kg

DRUGS (2)
  1. PLAN B ONE?STEP [Suspect]
     Active Substance: LEVONORGESTREL
     Indication: POST COITAL CONTRACEPTION
     Dosage: 1.5MG X1 DOSE
     Route: 048
     Dates: start: 20201001, end: 20201001
  2. VITAMIN C [Concomitant]
     Active Substance: ASCORBIC ACID
     Dates: start: 20200927, end: 20201004

REACTIONS (3)
  - Condition aggravated [Not Recovered/Not Resolved]
  - Fatigue [Not Recovered/Not Resolved]
  - Somnolence [Not Recovered/Not Resolved]

NARRATIVE: CASE EVENT DATE: 20201001
